FAERS Safety Report 7765364-X (Version None)
Quarter: 2011Q3

REPORT INFORMATION
  Report Type: 
  Country: None (occurrence: None)
  Receive Date: 20110921
  Receipt Date: 20110915
  Transmission Date: 20111222
  Serious: Yes (Other)
  Sender: FDA-Public Use
  Company Number: CHPA2011US12513

PATIENT
  Sex: Female

DRUGS (4)
  1. EXCEDRIN (MIGRAINE) [Suspect]
     Indication: ARTHRITIS
     Dosage: 2 DF, TID
     Route: 048
  2. EXCEDRIN (MIGRAINE) [Suspect]
     Indication: SOMNOLENCE
  3. AMLODIPINE [Concomitant]
     Indication: ULCER
     Dosage: 10 MG, UNK
  4. AMLODIPINE [Concomitant]
     Indication: GASTROINTESTINAL DISORDER

REACTIONS (3)
  - INCORRECT DRUG ADMINISTRATION DURATION [None]
  - DRUG INEFFECTIVE FOR UNAPPROVED INDICATION [None]
  - DRUG DEPENDENCE [None]
